FAERS Safety Report 7657143-9 (Version None)
Quarter: 2011Q3

REPORT INFORMATION
  Report Type: 
  Country: None (occurrence: None)
  Receive Date: 20110804
  Receipt Date: 20110513
  Transmission Date: 20111222
  Serious: No
  Sender: FDA-Public Use
  Company Number: US-GLAXOSMITHKLINE-A0927321A

PATIENT
  Sex: Male

DRUGS (9)
  1. BENTYL [Concomitant]
  2. PARAFON FORTE [Concomitant]
  3. WARFARIN [Concomitant]
  4. RHYTHMOL [Concomitant]
  5. SODIUM CHLORIDE [Concomitant]
  6. LUMIGAN [Concomitant]
  7. LISINOPRIL [Concomitant]
  8. OMEPRAZOLE [Concomitant]
  9. ADVAIR DISKUS 100/50 [Suspect]
     Indication: CHRONIC OBSTRUCTIVE PULMONARY DISEASE
     Dosage: 2PUFF TWICE PER DAY
     Route: 055
     Dates: start: 20100101, end: 20110501

REACTIONS (1)
  - DYSPHONIA [None]
